FAERS Safety Report 23033550 (Version 2)
Quarter: 2023Q4

REPORT INFORMATION
  Report Type: Report from Study
  Country: IE (occurrence: IE)
  Receive Date: 20231005
  Receipt Date: 20231228
  Transmission Date: 20240109
  Serious: Yes (Other)
  Sender: FDA-Public Use
  Company Number: IE-Merck Healthcare KGaA-2023477647

PATIENT
  Age: 45 Year
  Sex: Female

DRUGS (4)
  1. MAVENCLAD [Suspect]
     Active Substance: CLADRIBINE
     Indication: Relapsing-remitting multiple sclerosis
     Dosage: YEAR ONE WEEK ONE THERAPY: 2 DOSAGE FORM ON DAYS 1 AND 2 AND 1 DOSAGE FORM ON DAYS 3 TO 5.
     Route: 048
     Dates: start: 20220307
  2. MAVENCLAD [Suspect]
     Active Substance: CLADRIBINE
     Dosage: YEAR ONE WEEK FIVE THERAPY: 2 DOSAGE FORM ON DAYS 1 AND 2 AND 1 DOSAGE FORM ON DAYS 3 TO 5.
     Route: 048
     Dates: start: 20220404
  3. MAVENCLAD [Suspect]
     Active Substance: CLADRIBINE
     Dosage: YEAR TWO WEEK ONE THERAPY: 2 DOSAGE FORM ON DAYS 1 AND 2 AND 1 DOSAGE FORM ON DAYS 3 TO 5.
     Route: 048
     Dates: start: 20230626
  4. MAVENCLAD [Suspect]
     Active Substance: CLADRIBINE
     Dosage: YEAR TWO WEEK FIVE THERAPY: 2 DOSAGE FORM ON DAYS 1 AND 2 AND 1 DOSAGE FORM ON DAYS 3 TO 5.
     Route: 048
     Dates: start: 20230724

REACTIONS (11)
  - Blood thyroid stimulating hormone decreased [Not Recovered/Not Resolved]
  - Anti-thyroid antibody increased [Unknown]
  - White blood cell count decreased [Not Recovered/Not Resolved]
  - Low density lipoprotein increased [Unknown]
  - Mean cell volume increased [Unknown]
  - Lymphocyte count decreased [Not Recovered/Not Resolved]
  - Neutrophil count decreased [Unknown]
  - Blood creatinine increased [Unknown]
  - Blood cholesterol increased [Unknown]
  - Thyroxine free increased [Unknown]
  - Mean cell haemoglobin decreased [Unknown]

NARRATIVE: CASE EVENT DATE: 20230821
